FAERS Safety Report 5328789-8 (Version None)
Quarter: 2007Q2

REPORT INFORMATION
  Report Type: 
  Country: None (occurrence: None)
  Receive Date: 20070518
  Receipt Date: 20070502
  Transmission Date: 20071010
  Serious: Yes (Hospitalization, Other)
  Sender: FDA-Public Use
  Company Number: RO-ROCHE-495563

PATIENT
  Age: 10 Year
  Sex: Female

DRUGS (6)
  1. MYCOPHENOLATE MOFETIL [Suspect]
     Route: 048
     Dates: start: 20061115
  2. FK506 [Suspect]
     Route: 048
     Dates: start: 20061115
  3. FK506 [Suspect]
     Route: 048
  4. TRIMETOPRIM [Concomitant]
     Dates: start: 20061116
  5. CEFTRIAXONE [Concomitant]
     Dates: start: 20070402, end: 20070417
  6. TEICOPLANIN [Concomitant]
     Dates: start: 20070415, end: 20070419

REACTIONS (6)
  - ASTHENIA [None]
  - DYSURIA [None]
  - HYDRONEPHROSIS [None]
  - THERAPEUTIC AGENT TOXICITY [None]
  - URETERIC OBSTRUCTION [None]
  - URINARY TRACT INFECTION ENTEROCOCCAL [None]
